FAERS Safety Report 8772824 (Version 1)
Quarter: 2012Q4

REPORT INFORMATION
  Report Type: 
  Country: US (occurrence: US)
  Receive Date: 20120907
  Receipt Date: 20120907
  Transmission Date: 20130627
  Serious: Yes (Other)
  Sender: FDA-Public Use
  Company Number: US-PFIZER INC-2012217808

PATIENT
  Age: 63 Year
  Sex: Female

DRUGS (9)
  1. DETROL LA [Suspect]
     Dosage: 2 mg, 1x/day
     Route: 048
  2. METFORMIN HCL [Concomitant]
     Dosage: 500 mg, 2x/day
  3. LISINOPRIL [Concomitant]
     Dosage: 10 mg, 1x/day
  4. CYCLOBENZAPRINE HCL [Concomitant]
     Dosage: 10 mg, 1x/day at bedtime
  5. ALLOPURINOL [Concomitant]
     Dosage: 300 mg, 1x/day
  6. XOPENEX [Concomitant]
     Dosage: 1.25 mg, every 8 hours as needed
     Route: 055
  7. NITROSTAT [Concomitant]
     Dosage: 0.4 mg, UNK
  8. FLOVENT HFA [Concomitant]
     Dosage: 220 ug, 2 puffs twice daily as needed
  9. DUONEB [Concomitant]
     Dosage: UNK, 3/0.5 mg 3 ml every 6 hours

REACTIONS (10)
  - Type 2 diabetes mellitus [Unknown]
  - Hypertension [Unknown]
  - Obesity [Unknown]
  - Hypothyroidism [Unknown]
  - Dyslipidaemia [Unknown]
  - Fibromyalgia [Unknown]
  - Dysphagia [Unknown]
  - Dry skin [Unknown]
  - Erythema [Unknown]
  - Skin disorder [Unknown]
